FAERS Safety Report 23809385 (Version 1)
Quarter: 2024Q2

REPORT INFORMATION
  Report Type: Spontaneous
  Country: US (occurrence: None)
  Receive Date: 20240501
  Receipt Date: 20240501
  Transmission Date: 20240716
  Serious: Yes (Other)
  Sender: FDA-Public Use
  Company Number: None

PATIENT
  Age: 43 Year
  Sex: Female

DRUGS (2)
  1. EPINEPHRINE\LIDOCAINE [Suspect]
     Active Substance: EPINEPHRINE\LIDOCAINE
     Indication: Local anaesthesia
     Dosage: 5 ML 1 TIME SUBCUTANEOUS?
     Route: 058
     Dates: start: 20240426, end: 20240426
  2. Lidocaine HC1 Epinephrine [Concomitant]
     Dates: start: 20240426, end: 20240426

REACTIONS (3)
  - Swelling face [None]
  - Orbital swelling [None]
  - Swelling face [None]

NARRATIVE: CASE EVENT DATE: 20240426
